FAERS Safety Report 9954379 (Version 4)
Quarter: 2014Q2

REPORT INFORMATION
  Report Type: Report from Study
  Country: TR (occurrence: TR)
  Receive Date: 20140304
  Receipt Date: 20140428
  Transmission Date: 20141212
  Serious: Yes (Hospitalization)
  Sender: FDA-Public Use
  Company Number: TR-BAYER-2014-026618

PATIENT
  Age: 47 Year
  Sex: Female
  Weight: 79 kg

DRUGS (24)
  1. RIOCIGUAT (GUANYLATE CYCLASE STIMULATOR) [Suspect]
     Indication: PULMONARY HYPERTENSION
     Dosage: 1 MG, TID (VISIT 1)
     Route: 048
     Dates: start: 20131227, end: 20140109
  2. RIOCIGUAT (GUANYLATE CYCLASE STIMULATOR) [Suspect]
     Indication: PULMONARY HYPERTENSION
     Dosage: 1 MG, TID (VISIT 2)
     Route: 048
     Dates: start: 20140109, end: 20140123
  3. RIOCIGUAT (GUANYLATE CYCLASE STIMULATOR) [Suspect]
     Indication: PULMONARY HYPERTENSION
     Dosage: 1.5 MG, TID (VISIT 3)
     Route: 048
     Dates: start: 20140123, end: 20140206
  4. RIOCIGUAT (GUANYLATE CYCLASE STIMULATOR) [Suspect]
     Indication: PULMONARY HYPERTENSION
     Dosage: 1.5 MG, TID (VISIT 4)
     Route: 048
     Dates: start: 20140206, end: 20140219
  5. RIOCIGUAT (GUANYLATE CYCLASE STIMULATOR) [Suspect]
     Indication: PULMONARY HYPERTENSION
     Dosage: 1.5 MG, TID
     Route: 048
     Dates: start: 20140219, end: 20140223
  6. COUMADINE [Concomitant]
     Indication: PULMONARY EMBOLISM
     Dosage: 5-75 MG, PRN
     Route: 048
     Dates: start: 20110815, end: 20140223
  7. COUMADINE [Concomitant]
     Indication: PULMONARY EMBOLISM
     Dosage: 5-75 MG, PRN
     Route: 048
     Dates: start: 20140328
  8. LASIX [Concomitant]
     Indication: PULMONARY HYPERTENSION
     Dosage: 20 MG, UNK
     Route: 048
     Dates: start: 20140109, end: 20140214
  9. LASIX [Concomitant]
     Indication: PULMONARY HYPERTENSION
     Dosage: 40 MG, UNK
     Route: 042
     Dates: start: 20131223, end: 20131226
  10. PANTO [PANTOPRAZOLE SODIUM] [Concomitant]
     Indication: PROPHYLAXIS
     Dosage: 40 MG, UNK
     Route: 048
     Dates: start: 20131223, end: 20131226
  11. PANTO [PANTOPRAZOLE SODIUM] [Concomitant]
     Indication: ABDOMINAL PAIN UPPER
     Dosage: 40 MG, QD
     Dates: start: 20140217, end: 20140220
  12. FERRO SANOL DUODENOL MITE [Concomitant]
     Indication: ANAEMIA
     Dosage: 100 MG, QD
     Route: 048
     Dates: start: 20140206
  13. METPAMID [Concomitant]
     Indication: NAUSEA
     Dosage: 10 MG, QD
     Dates: start: 20140205, end: 201403
  14. VOLTAREN [Concomitant]
     Indication: CHEST PAIN
     Dosage: 1X1
     Route: 061
     Dates: start: 20140219
  15. VENTAVIS [Concomitant]
     Indication: PULMONARY HYPERTENSION
     Dosage: 6 X 0.5
     Route: 055
     Dates: start: 20140306
  16. PREDNOL [METHYLPREDNISOLONE] [Concomitant]
     Indication: ANTIPHOSPHOLIPID SYNDROME
     Dosage: 20 MG, QD
     Route: 042
     Dates: start: 20140305, end: 20140317
  17. PREDNOL [METHYLPREDNISOLONE] [Concomitant]
     Indication: ANTIPHOSPHOLIPID SYNDROME
     Dosage: 16 MG, QD
     Route: 048
     Dates: start: 20140318
  18. PLAQUENIL [Concomitant]
     Indication: ANTIPHOSPHOLIPID SYNDROME
     Dosage: 200 MG, QD
     Route: 048
     Dates: start: 20140305
  19. MICOSTATIN [Concomitant]
     Indication: TONGUE ULCERATION
     Dosage: 3 X 1
     Route: 048
     Dates: start: 20140315
  20. AUGMENTIN [Concomitant]
     Indication: URINARY TRACT INFECTION
     Dosage: 1 G, QD
     Dates: start: 20140315, end: 20140320
  21. ROCEPHIN [Concomitant]
     Indication: URINARY TRACT INFECTION
     Dosage: 1 G, QD
     Route: 042
     Dates: start: 20140308, end: 20140315
  22. CAL-D-VITA [Concomitant]
     Indication: ANTIPHOSPHOLIPID SYNDROME
     Dosage: 1 X 1
     Route: 048
     Dates: start: 20140318
  23. LANTUS [Concomitant]
     Indication: TYPE 2 DIABETES MELLITUS
     Dosage: 20 U, UNK
     Route: 058
     Dates: start: 20140307, end: 20140401
  24. HUMULIN R [Concomitant]
     Indication: TYPE 2 DIABETES MELLITUS
     Dosage: 3-6 UNITS
     Route: 042
     Dates: start: 20140317, end: 20140401

REACTIONS (9)
  - Right ventricular failure [Recovered/Resolved]
  - Hypotension [Recovered/Resolved]
  - Headache [Recovered/Resolved]
  - Abdominal pain upper [Recovered/Resolved]
  - Abdominal pain upper [Recovered/Resolved]
  - Hypotension [Recovered/Resolved]
  - Nasopharyngitis [Recovered/Resolved]
  - Nausea [None]
  - Oedema peripheral [None]
